FAERS Safety Report 5919803-7 (Version None)
Quarter: 2008Q4

REPORT INFORMATION
  Report Type: 
  Country: None (occurrence: None)
  Receive Date: 20081015
  Receipt Date: 20081013
  Transmission Date: 20090506
  Serious: Yes (Hospitalization, Other)
  Sender: FDA-Public Use
  Company Number: US-PFIZER INC-2008043756

PATIENT
  Sex: Female
  Weight: 95.3 kg

DRUGS (2)
  1. BEXTRA [Suspect]
     Indication: ARTHRITIS
     Dates: start: 20030912
  2. BEXTRA [Suspect]
     Indication: PAIN

REACTIONS (1)
  - CEREBROVASCULAR ACCIDENT [None]
